FAERS Safety Report 12694754 (Version 1)
Quarter: 2016Q3

REPORT INFORMATION
  Report Type: Spontaneous
  Country: US (occurrence: US)
  Receive Date: 20160829
  Receipt Date: 20160829
  Transmission Date: 20161109
  Serious: Yes (Other)
  Sender: FDA-Public Use
  Company Number: US-BAYER-2016-166987

PATIENT
  Age: 73 Year
  Sex: Female
  Weight: 52.16 kg

DRUGS (4)
  1. AMLODIPINE [Concomitant]
     Active Substance: AMLODIPINE BESYLATE
  2. MICARDIS [Concomitant]
     Active Substance: TELMISARTAN
  3. LIPITOR [Concomitant]
     Active Substance: ATORVASTATIN CALCIUM
  4. BAYER LOW DOSE [Suspect]
     Active Substance: ASPIRIN
     Indication: PROPHYLAXIS
     Dosage: 1 DF, BIW
     Route: 048
     Dates: start: 2014, end: 201605

REACTIONS (3)
  - Therapeutic response unexpected [Unknown]
  - Abdominal pain upper [Recovering/Resolving]
  - Gastric ulcer [Not Recovered/Not Resolved]

NARRATIVE: CASE EVENT DATE: 2014
